FAERS Safety Report 12863487 (Version 2)
Quarter: 2017Q2

REPORT INFORMATION
  Report Type: Report from Study
  Country: JP (occurrence: JP)
  Receive Date: 20161019
  Receipt Date: 20170622
  Transmission Date: 20170830
  Serious: Yes (Death, Other)
  Sender: FDA-Public Use
  Company Number: JP-EISAI MEDICAL RESEARCH-EC-2016-018900

PATIENT
  Age: 72 Year
  Sex: Female
  Weight: 44 kg

DRUGS (16)
  1. LENVIMA [Suspect]
     Active Substance: LENVATINIB
     Route: 048
     Dates: start: 20150908, end: 20151021
  2. LENVIMA [Suspect]
     Active Substance: LENVATINIB
     Route: 048
     Dates: start: 20160125, end: 20160218
  3. HIRUDOID [Concomitant]
     Active Substance: GLYCOSAMINOGLYCANS
  4. LENVIMA [Suspect]
     Active Substance: LENVATINIB
     Route: 048
     Dates: start: 20160304, end: 20160331
  5. AZILVA [Concomitant]
     Active Substance: AZILSARTAN KAMEDOXOMIL
  6. LENVIMA [Suspect]
     Active Substance: LENVATINIB
     Indication: NEOPLASM MALIGNANT
     Route: 048
     Dates: start: 20150602, end: 20150608
  7. LENVIMA [Suspect]
     Active Substance: LENVATINIB
     Route: 048
     Dates: start: 20150616, end: 20150720
  8. LENVIMA [Suspect]
     Active Substance: LENVATINIB
     Route: 048
     Dates: start: 20160923, end: 20161005
  9. LEVOTHYROXINE SODIUM HYDRATE [Concomitant]
     Active Substance: LEVOTHYROXINE SODIUM
  10. LENVIMA [Suspect]
     Active Substance: LENVATINIB
     Route: 048
     Dates: start: 20150609, end: 20150615
  11. LENVIMA [Suspect]
     Active Substance: LENVATINIB
     Route: 048
     Dates: start: 20150721, end: 20150907
  12. LENVIMA [Suspect]
     Active Substance: LENVATINIB
     Route: 048
     Dates: start: 20160115, end: 20160124
  13. LENVIMA [Suspect]
     Active Substance: LENVATINIB
     Route: 048
     Dates: start: 20160219, end: 20160303
  14. LENVIMA [Suspect]
     Active Substance: LENVATINIB
     Route: 048
     Dates: start: 20151022, end: 20151102
  15. LENVIMA [Suspect]
     Active Substance: LENVATINIB
     Route: 048
     Dates: start: 20160916, end: 20160922
  16. LOCOID [Concomitant]
     Active Substance: HYDROCORTISONE BUTYRATE

REACTIONS (2)
  - Hypovolaemic shock [Recovered/Resolved]
  - Arterial haemorrhage [Fatal]

NARRATIVE: CASE EVENT DATE: 20150920
